FAERS Safety Report 23448063 (Version 3)
Quarter: 2025Q2

REPORT INFORMATION
  Report Type: Spontaneous
  Country: CA (occurrence: CA)
  Receive Date: 20240126
  Receipt Date: 20250512
  Transmission Date: 20250717
  Serious: Yes (Other)
  Sender: PFIZER
  Company Number: CA-PFIZER INC-202400024056

PATIENT
  Age: 82 Year
  Sex: Male

DRUGS (8)
  1. RUXIENCE [Suspect]
     Active Substance: RITUXIMAB-PVVR
     Indication: Microscopic polyangiitis
     Route: 042
     Dates: start: 20231011, end: 20231025
  2. RUXIENCE [Suspect]
     Active Substance: RITUXIMAB-PVVR
     Route: 042
     Dates: start: 20231025
  3. BISOPROLOL [Concomitant]
     Active Substance: BISOPROLOL
  4. DAPSONE [Concomitant]
     Active Substance: DAPSONE
  5. ELIQUIS [Concomitant]
     Active Substance: APIXABAN
  6. PREDNISONE [Concomitant]
     Active Substance: PREDNISONE
  7. RANITIDINE [Concomitant]
     Active Substance: RANITIDINE
  8. TAMSULOSIN [Concomitant]
     Active Substance: TAMSULOSIN

REACTIONS (5)
  - Varicose vein [Not Recovered/Not Resolved]
  - Erythema [Not Recovered/Not Resolved]
  - Rash [Not Recovered/Not Resolved]
  - Synovial cyst [Unknown]
  - Off label use [Unknown]

NARRATIVE: CASE EVENT DATE: 20231011
